FAERS Safety Report 8819810 (Version 6)
Quarter: 2013Q1

REPORT INFORMATION
  Report Type: Report from Study
  Country: DE (occurrence: DE)
  Receive Date: 20121001
  Receipt Date: 20130129
  Transmission Date: 20140127
  Serious: Yes (Hospitalization, Other)
  Sender: FDA-Public Use
  Company Number: DE-ABBOTT-12P-062-0986365-00

PATIENT
  Age: 42 None
  Sex: Male

DRUGS (13)
  1. KALETRA [Suspect]
     Indication: HIV INFECTION
     Dates: start: 20090825
  2. KIVEXA [Concomitant]
     Indication: HIV INFECTION
     Dates: start: 20090825
  3. RAMIPRIL [Concomitant]
     Indication: HYPERTENSION
     Dates: start: 20120207, end: 20120625
  4. AMLODIPIN [Concomitant]
     Indication: HYPERTENSION
     Dates: start: 20090921, end: 20120625
  5. BISOPROLOL [Concomitant]
     Indication: PRODUCT USED FOR UNKNOWN INDICATION
     Dosage: FREQUENCY: 1.5; FREQUENCY TIME: 1 DAYS
     Dates: start: 20120215, end: 20120625
  6. HYDROCHLOROTHIAZIDE [Concomitant]
     Indication: HYPERTENSION
     Dates: start: 20120215, end: 20120625
  7. PANTOPRAZOLE [Concomitant]
     Indication: PRODUCT USED FOR UNKNOWN INDICATION
  8. ACETYLSALICYLIC ACID [Concomitant]
     Indication: PRODUCT USED FOR UNKNOWN INDICATION
  9. CLOPIDOGREL [Concomitant]
     Indication: PRODUCT USED FOR UNKNOWN INDICATION
  10. PREGABALIN [Concomitant]
     Indication: PRODUCT USED FOR UNKNOWN INDICATION
  11. TILIDINE, NALOXONE [Concomitant]
     Indication: PRODUCT USED FOR UNKNOWN INDICATION
     Dosage: 100MG/8MG, THREE TIMES A DAY
  12. FUROSEMID [Concomitant]
     Indication: PRODUCT USED FOR UNKNOWN INDICATION
  13. EPLERENON [Concomitant]
     Indication: PRODUCT USED FOR UNKNOWN INDICATION

REACTIONS (15)
  - Coronary artery disease [Not Recovered/Not Resolved]
  - Myocardial infarction [Not Recovered/Not Resolved]
  - Thoracic vertebral fracture [Not Recovered/Not Resolved]
  - Cardiac failure [Not Recovered/Not Resolved]
  - Spinal osteoarthritis [Not Recovered/Not Resolved]
  - Sinus tachycardia [Unknown]
  - Pain [Unknown]
  - Oedema peripheral [Unknown]
  - Extrasystoles [Unknown]
  - Diarrhoea [Unknown]
  - Blood triglycerides abnormal [Unknown]
  - Blood cholesterol abnormal [Unknown]
  - Hyperglycaemia [Unknown]
  - Fatigue [Unknown]
  - Pyrexia [Unknown]
